FAERS Safety Report 8224964 (Version 5)
Quarter: 2012Q4

REPORT INFORMATION
  Report Type: 
  Country: US (occurrence: US)
  Receive Date: 20111103
  Receipt Date: 20120912
  Transmission Date: 20130627
  Serious: Yes (Other)
  Sender: FDA-Public Use
  Company Number: US-ENDO PHARMACEUTICALS INC.-PREV20110036

PATIENT
  Age: 28 None
  Sex: Female

DRUGS (2)
  1. PREVIFEM [Suspect]
     Indication: CONTRACEPTION
     Dosage: UNKNOWN
     Route: 048
  2. TRI-PREVIFEM [Suspect]
     Indication: CONTRACEPTION
     Dosage: UNKNOWN
     Route: 048

REACTIONS (6)
  - Abortion threatened [Recovered/Resolved]
  - Injury [Unknown]
  - Live birth [Recovered/Resolved]
  - Pregnancy on oral contraceptive [Unknown]
  - Drug ineffective [Unknown]
  - Product quality issue [Unknown]
